FAERS Safety Report 18103559 (Version 2)
Quarter: 2020Q3

REPORT INFORMATION
  Report Type: Spontaneous
  Country: US (occurrence: US)
  Receive Date: 20200803
  Receipt Date: 20200808
  Transmission Date: 20201103
  Serious: Yes (Hospitalization)
  Sender: FDA-Public Use
  Company Number: US-CELGENEUS-USA-20200707791

PATIENT
  Age: 69 Year
  Sex: Male
  Weight: 69.01 kg

DRUGS (3)
  1. INREBIC [Suspect]
     Active Substance: FEDRATINIB HYDROCHLORIDE
     Indication: MYELOFIBROSIS
     Dosage: 300 MILLIGRAM
     Route: 048
     Dates: start: 20191022
  2. CEPHALEXIN. [Concomitant]
     Active Substance: CEPHALEXIN
     Indication: PRODUCT USED FOR UNKNOWN INDICATION
     Route: 065
  3. TAMSULOSIN [Concomitant]
     Active Substance: TAMSULOSIN
     Indication: PRODUCT USED FOR UNKNOWN INDICATION
     Route: 065

REACTIONS (1)
  - Urinary tract infection [Unknown]

NARRATIVE: CASE EVENT DATE: 202004
